FAERS Safety Report 4591538-5 (Version None)
Quarter: 2005Q1

REPORT INFORMATION
  Report Type: 
  Country: None (occurrence: None)
  Receive Date: 20050222
  Receipt Date: 20050201
  Transmission Date: 20050727
  Serious: Yes (Hospitalization)
  Sender: FDA-Public Use
  Company Number: B0369248A

PATIENT
  Age: 77 Year
  Sex: Female

DRUGS (3)
  1. PAXIL [Suspect]
     Dosage: 20 MG PER DAY
  2. PAXIL CR [Suspect]
     Dosage: PER DAY, ORAL
     Route: 048
     Dates: start: 20030101
  3. (BUPROPION HYDROCLORIDE) [Concomitant]

REACTIONS (7)
  - ANXIETY [None]
  - CONFUSIONAL STATE [None]
  - DEPRESSION [None]
  - FATIGUE [None]
  - FEELING ABNORMAL [None]
  - INAPPROPRIATE ANTIDIURETIC HORMONE SECRETION [None]
  - MALAISE [None]
